FAERS Safety Report 14752741 (Version 2)
Quarter: 2018Q2

REPORT INFORMATION
  Report Type: Spontaneous
  Country: FR (occurrence: FR)
  Receive Date: 20180412
  Receipt Date: 20180509
  Transmission Date: 20180711
  Serious: Yes (Hospitalization)
  Sender: FDA-Public Use
  Company Number: FR-BAUSCH-BL-2018-009530

PATIENT
  Age: 79 Year
  Sex: Male

DRUGS (13)
  1. INEXIUM [Suspect]
     Active Substance: ESOMEPRAZOLE
     Indication: GASTRITIS
     Dosage: GASTRO-RESISTANT TABLET
     Route: 048
     Dates: start: 201604
  2. PLAVIX [Suspect]
     Active Substance: CLOPIDOGREL BISULFATE
     Indication: PRODUCT USED FOR UNKNOWN INDICATION
     Route: 048
     Dates: start: 201608, end: 20171017
  3. ZOPICLONE [Suspect]
     Active Substance: ZOPICLONE
     Indication: PRODUCT USED FOR UNKNOWN INDICATION
     Route: 048
  4. DAFALGAN CODEINE [Suspect]
     Active Substance: ACETAMINOPHEN\CODEINE PHOSPHATE
     Indication: PRODUCT USED FOR UNKNOWN INDICATION
     Route: 048
  5. COTAREG [Suspect]
     Active Substance: HYDROCHLOROTHIAZIDE\VALSARTAN
     Indication: PRODUCT USED FOR UNKNOWN INDICATION
     Route: 048
  6. PERMIXON [Suspect]
     Active Substance: HERBALS\SAW PALMETTO
     Indication: BENIGN PROSTATIC HYPERPLASIA
  7. CARDENSIEL [Suspect]
     Active Substance: BISOPROLOL FUMARATE
     Indication: PRODUCT USED FOR UNKNOWN INDICATION
     Route: 048
  8. AVODART [Suspect]
     Active Substance: DUTASTERIDE
     Indication: BENIGN PROSTATIC HYPERPLASIA
     Dosage: SOFT CAPSULE
     Route: 048
  9. CARAFATE [Suspect]
     Active Substance: SUCRALFATE
     Indication: GASTRITIS
     Route: 048
  10. PERMIXON [Suspect]
     Active Substance: HERBALS\SAW PALMETTO
     Indication: BENIGN PROSTATIC HYPERPLASIA
     Route: 048
  11. METFORMIN [Suspect]
     Active Substance: METFORMIN HYDROCHLORIDE
     Indication: DIABETES MELLITUS
     Route: 048
  12. HEMIGOXINE NATIVELLE [Suspect]
     Active Substance: DIGOXIN
     Indication: PRODUCT USED FOR UNKNOWN INDICATION
     Route: 048
  13. EZETROL [Suspect]
     Active Substance: EZETIMIBE
     Indication: PRODUCT USED FOR UNKNOWN INDICATION
     Route: 048

REACTIONS (1)
  - Thrombocytopenia [Not Recovered/Not Resolved]

NARRATIVE: CASE EVENT DATE: 20171007
